FAERS Safety Report 4356298-1 (Version None)
Quarter: 2004Q2

REPORT INFORMATION
  Report Type: 
  Country: None (occurrence: None)
  Receive Date: 20040510
  Receipt Date: 20040510
  Transmission Date: 20050107
  Serious: Yes (Hospitalization)
  Sender: FDA-Public Use
  Company Number: None

PATIENT
  Age: 29 Year
  Sex: Female

DRUGS (2)
  1. DIPRIVAN [Suspect]
     Dosage: 1-4 MG/KG/HR
     Dates: start: 20030830, end: 20030921
  2. ATIVAN [Suspect]
     Dosage: 2.5-6 MG/HR
     Dates: start: 20030831, end: 20030919

REACTIONS (1)
  - METABOLIC ACIDOSIS [None]
